FAERS Safety Report 4634222-1 (Version None)
Quarter: 2005Q2

REPORT INFORMATION
  Report Type: 
  Country: None (occurrence: None)
  Receive Date: 20050325
  Receipt Date: 20041203
  Transmission Date: 20051028
  Serious: No
  Sender: FDA-Public Use
  Company Number: USA030331586

PATIENT
  Age: 76 Year
  Sex: Female
  Weight: 50 kg

DRUGS (5)
  1. FORTEO [Suspect]
     Indication: OSTEOPOROSIS
     Dosage: 20 UG DAY
     Dates: start: 20030309
  2. CALCIUM GLUCONATE [Concomitant]
  3. VITAMIN B COMPLEX CAP [Concomitant]
  4. VITAMIN C [Concomitant]
  5. VITAMIN E [Concomitant]

REACTIONS (7)
  - ASTHENIA [None]
  - COMPRESSION FRACTURE [None]
  - DIARRHOEA [None]
  - HYPERSENSITIVITY [None]
  - NAUSEA [None]
  - SPINAL FUSION SURGERY [None]
  - THORACIC VERTEBRAL FRACTURE [None]
